FAERS Safety Report 17130956 (Version 1)
Quarter: 2019Q4

REPORT INFORMATION
  Report Type: Spontaneous
  Country: US (occurrence: US)
  Receive Date: 20191209
  Receipt Date: 20191209
  Transmission Date: 20200122
  Serious: No
  Sender: FDA-Public Use
  Company Number: US-ROCHE-2357335

PATIENT
  Age: 67 Year
  Sex: Female

DRUGS (3)
  1. DIAZEPAM. [Suspect]
     Active Substance: DIAZEPAM
     Indication: SEDATION
     Route: 042
  2. PHYSOSTIGMINE [Concomitant]
     Active Substance: PHYSOSTIGMINE
     Route: 042
  3. MEPERIDINE [PETHIDINE] [Concomitant]
     Active Substance: MEPERIDINE
     Route: 042

REACTIONS (1)
  - Obstructive airways disorder [Recovered/Resolved]
